FAERS Safety Report 20612487 (Version 6)
Quarter: 2022Q2

REPORT INFORMATION
  Report Type: Report from Study
  Country: PL (occurrence: PL)
  Receive Date: 20220318
  Receipt Date: 20220509
  Transmission Date: 20220721
  Serious: Yes (Hospitalization)
  Sender: FDA-Public Use
  Company Number: PL-G1-000496

PATIENT
  Age: 59 Year
  Sex: Female
  Weight: 69 kg

DRUGS (38)
  1. TRILACICLIB [Suspect]
     Active Substance: TRILACICLIB
     Indication: Myelosuppression
     Dosage: TIME INTERVAL: CYCLICAL; 240 MG/M2 ON DAY 1 AND 2 OF EACH 14-DAY CYCLE
     Route: 041
     Dates: start: 20220209, end: 20220210
  2. TRILACICLIB [Suspect]
     Active Substance: TRILACICLIB
     Indication: Myelosuppression
     Dosage: TIME INTERVAL: CYCLICAL; 240 MG/M2 ON DAY 1 AND 2 OF EACH 14-DAY CYCLE
     Route: 041
     Dates: start: 20220223, end: 20220224
  3. BEVACIZUMAB [Suspect]
     Active Substance: BEVACIZUMAB
     Indication: Rectal cancer metastatic
     Dosage: TIME INTERVAL: CYCLICAL; 5 MG/KG ON DAY 1 OF EACH 14-DAY CYCLE
     Route: 041
     Dates: start: 20220209, end: 20220209
  4. BEVACIZUMAB [Suspect]
     Active Substance: BEVACIZUMAB
     Indication: Rectal cancer metastatic
     Dosage: TIME INTERVAL: CYCLICAL; 5 MG/KG ON DAY 1 OF EACH 14-DAY CYCLE
     Route: 041
     Dates: start: 20220223, end: 20220223
  5. FLUOROURACIL [Suspect]
     Active Substance: FLUOROURACIL
     Indication: Rectal cancer metastatic
     Dosage: TIME INTERVAL: CYCLICAL; 2400 MG/M2 BY CONTINUOUS INFUSION OVER 48 HOURS STARTING ON DAY 1 OF EAC...
     Route: 041
     Dates: start: 20220209, end: 20220211
  6. FLUOROURACIL [Suspect]
     Active Substance: FLUOROURACIL
     Indication: Rectal cancer metastatic
     Dosage: TIME INTERVAL: CYCLICAL; 2400 MG/M2 BY CONTINUOUS INFUSION OVER 48 HOURS STARTING ON DAY 1 OF EAC...
     Route: 041
     Dates: start: 20220223, end: 20220225
  7. IRINOTECAN [Suspect]
     Active Substance: IRINOTECAN
     Indication: Rectal cancer metastatic
     Dosage: TIME INTERVAL: CYCLICAL; 165 MG/M2 ON DAY 1 OF EACH 14-DAY CYCLE
     Route: 041
     Dates: start: 20220209
  8. IRINOTECAN [Suspect]
     Active Substance: IRINOTECAN
     Indication: Rectal cancer metastatic
     Dosage: TIME INTERVAL: CYCLICAL; 165 MG/M2 ON DAY 1 OF EACH 14-DAY CYCLE
     Route: 041
     Dates: start: 20220223, end: 20220223
  9. LEUCOVORIN [Suspect]
     Active Substance: LEUCOVORIN
     Indication: Rectal cancer metastatic
     Dosage: TIME INTERVAL: CYCLICAL; 400 MG/M2 ON DAY 1 OF EACH 14-DAY CYCLE
     Route: 041
     Dates: start: 20220209, end: 20220209
  10. LEUCOVORIN [Suspect]
     Active Substance: LEUCOVORIN
     Indication: Rectal cancer metastatic
     Dosage: TIME INTERVAL: CYCLICAL; 400 MG/M2 ON DAY 1 OF EACH 14-DAY CYCLE
     Route: 041
     Dates: start: 20220223, end: 20220223
  11. OXALIPLATIN [Suspect]
     Active Substance: OXALIPLATIN
     Indication: Rectal cancer metastatic
     Dosage: TIME INTERVAL: CYCLICAL; 85 MG/M2 ON DAY 1 OF EACH 14-DAY CYCLE
     Route: 041
     Dates: start: 20220209, end: 20220209
  12. OXALIPLATIN [Suspect]
     Active Substance: OXALIPLATIN
     Indication: Rectal cancer metastatic
     Dosage: TIME INTERVAL: CYCLICAL; 85 MG/M2 ON DAY 1 OF EACH 14-DAY CYCLE
     Route: 041
     Dates: start: 20220223, end: 20220223
  13. 1307830 (GLOBALC3Sep21): Clexane [Concomitant]
     Indication: Thrombosis prophylaxis
     Route: 058
     Dates: start: 20220208
  14. 1307742 (GLOBALC3Sep21): Paracetamol [Concomitant]
  15. 1306609 (GLOBALC3Sep21): Atropin [Concomitant]
     Indication: Premedication
     Route: 058
     Dates: start: 20220209, end: 20220209
  16. 1306609 (GLOBALC3Sep21): Atropin [Concomitant]
     Indication: Premedication
     Route: 058
     Dates: start: 20220223, end: 20220223
  17. 1224246 (GLOBALC3Sep21): Dexaven [Concomitant]
     Indication: Premedication
     Route: 042
     Dates: start: 20220209, end: 20220210
  18. 1224246 (GLOBALC3Sep21): Dexaven [Concomitant]
     Indication: Premedication
     Route: 042
     Dates: start: 20220223, end: 20220224
  19. 1224246 (GLOBALC3Sep21): Dexaven [Concomitant]
     Indication: Premedication
     Dosage: TIME INTERVAL: 0.33333333 DAYS
     Route: 042
     Dates: start: 20220224, end: 20220225
  20. 1519001 (GLOBALC3Sep21): Ondansetron [Concomitant]
     Indication: Premedication
     Route: 042
     Dates: start: 20220209, end: 20220210
  21. 1519001 (GLOBALC3Sep21): Ondansetron [Concomitant]
     Indication: Premedication
     Route: 042
     Dates: start: 20220223, end: 20220224
  22. 1519001 (GLOBALC3Sep21): Ondansetron [Concomitant]
     Indication: Premedication
     Dosage: TIME INTERVAL: 0.33333333 DAYS
     Route: 042
     Dates: start: 20220224, end: 20220225
  23. 4274567 (GLOBALC3Sep21): Auxilen [Concomitant]
     Indication: Diaphragmalgia
     Route: 042
     Dates: start: 20220209, end: 20220210
  24. 1582142 (GLOBALC3Sep21): Pyralginum [Concomitant]
     Indication: Diaphragmalgia
     Dosage: TIME INTERVAL: 0.33333333 DAYS
     Route: 042
     Dates: start: 20220209, end: 20220210
  25. 1309060 (GLOBALC3Sep21): Morphini sulfas [Concomitant]
     Indication: Diaphragmalgia
     Route: 058
     Dates: start: 20220210, end: 20220210
  26. 1309060 (GLOBALC3Sep21): Morphini sulfas [Concomitant]
     Indication: Diaphragmalgia
     Route: 058
     Dates: start: 20220211, end: 20220211
  27. 1309060 (GLOBALC3Sep21): Morphini sulfas [Concomitant]
     Indication: Diaphragmalgia
     Route: 058
     Dates: start: 20220223, end: 20220223
  28. 1307742 (GLOBALC3Sep21): Paracetamol [Concomitant]
     Indication: Diaphragmalgia
     Dosage: TIME INTERVAL: 0.33333333 DAYS
     Route: 042
     Dates: start: 20220209, end: 20220209
  29. 1307742 (GLOBALC3Sep21): Paracetamol [Concomitant]
     Indication: Diaphragmalgia
     Route: 048
     Dates: start: 20220211, end: 20220311
  30. 1518998 (GLOBALC3Sep21): Metoclopramid [Concomitant]
     Indication: Prophylaxis of nausea and vomiting
     Dosage: TIME INTERVAL: 0.33333333 DAYS
     Route: 042
     Dates: start: 20220211, end: 20220211
  31. 3291863 (GLOBALC3Sep21): Prenome [Concomitant]
     Indication: Gastritis prophylaxis
     Route: 048
     Dates: start: 20220210, end: 20220211
  32. 3291863 (GLOBALC3Sep21): Prenome [Concomitant]
     Indication: Gastritis prophylaxis
     Route: 048
     Dates: start: 20220223, end: 20220225
  33. 1887622 (GLOBALC3Sep21): Senzop [Concomitant]
     Indication: Prophylaxis
     Route: 048
     Dates: start: 20220210, end: 20220210
  34. 4092283 (GLOBALC3Sep21): Oxycodon [Concomitant]
     Indication: Diaphragmalgia
     Route: 048
     Dates: start: 20220211, end: 20220211
  35. 2613417 (GLOBALC3Sep21): Lyrica [Concomitant]
     Indication: Diaphragmalgia
     Route: 048
     Dates: start: 20220211, end: 20220211
  36. 1308530 (GLOBALC3Sep21): Acetylocysteina [Concomitant]
     Indication: Cough
     Route: 048
     Dates: start: 20220224, end: 20220224
  37. 2639886 (GLOBALC3Sep21): Olanzapin [Concomitant]
     Indication: Insomnia
     Route: 048
     Dates: start: 20220224, end: 20220224
  38. 3150418 (GLOBALC3Sep21): Accordeon [Concomitant]
     Indication: Prophylaxis
     Route: 048
     Dates: start: 20220223, end: 20220225

REACTIONS (1)
  - Infectious pleural effusion [Recovered/Resolved]

NARRATIVE: CASE EVENT DATE: 20220308
